FAERS Safety Report 5298802-5 (Version None)
Quarter: 2007Q2

REPORT INFORMATION
  Report Type: 
  Country: None (occurrence: None)
  Receive Date: 20070417
  Receipt Date: 20070405
  Transmission Date: 20071010
  Serious: Yes (Hospitalization)
  Sender: FDA-Public Use
  Company Number: GB-ROCHE-492786

PATIENT
  Age: 56 Year
  Sex: Female
  Weight: 89 kg

DRUGS (9)
  1. XENICAL [Suspect]
     Indication: OBESITY
     Route: 048
     Dates: start: 20060815
  2. RAMIPRIL [Concomitant]
     Indication: HYPERTENSION
     Route: 048
  3. CELIPROLOL [Concomitant]
     Indication: HYPERTENSION
     Route: 048
  4. INDALPINE [Concomitant]
     Indication: HYPERTENSION
     Route: 048
  5. ANASTROZOLE [Concomitant]
     Indication: BREAST CANCER
     Route: 048
  6. LEVOTHYROXINE SODIUM [Concomitant]
     Indication: HYPOTHYROIDISM
     Route: 048
  7. GLUCOSAMINE [Concomitant]
     Indication: ARTHRITIS
     Route: 048
  8. IBUPROFEN [Concomitant]
     Indication: HEADACHE
     Route: 048
  9. PARAMAX [Concomitant]
     Indication: HEADACHE
     Route: 048

REACTIONS (3)
  - FOOT FRACTURE [None]
  - LIMB INJURY [None]
  - ROAD TRAFFIC ACCIDENT [None]
